FAERS Safety Report 16105910 (Version 1)
Quarter: 2019Q1

REPORT INFORMATION
  Report Type: Spontaneous
  Country: JP (occurrence: JP)
  Receive Date: 20190322
  Receipt Date: 20190322
  Transmission Date: 20190418
  Serious: Yes (Death)
  Sender: FDA-Public Use
  Company Number: JP-PFIZER INC-2019120292

PATIENT
  Age: 80 Year
  Sex: Female

DRUGS (2)
  1. MINOMYCIN 100MG [Suspect]
     Active Substance: MINOCYCLINE HYDROCHLORIDE
     Dosage: UNK
     Dates: start: 201510, end: 201510
  2. DALACIN S 600MG [Suspect]
     Active Substance: CLINDAMYCIN PHOSPHATE
     Dosage: UNK
     Dates: start: 201510, end: 201510

REACTIONS (1)
  - Clostridium difficile colitis [Fatal]
